FAERS Safety Report 6190016-X (Version None)
Quarter: 2009Q2

REPORT INFORMATION
  Report Type: 
  Country: None (occurrence: None)
  Receive Date: 20090514
  Receipt Date: 20090511
  Transmission Date: 20091009
  Serious: Yes (Other)
  Sender: FDA-Public Use
  Company Number: PHHY2009JP15386

PATIENT
  Age: 17 Year
  Sex: Male

DRUGS (7)
  1. VOLTAREN [Suspect]
     Indication: ARTHRITIS
  2. VOLTAREN [Suspect]
     Indication: PAIN
  3. PREDONINE [Concomitant]
  4. RHEUMATREX [Concomitant]
  5. SALAZOPYRIN [Concomitant]
  6. REMICADE [Concomitant]
  7. GASTER [Concomitant]

REACTIONS (7)
  - BIOPSY KIDNEY [None]
  - GENERAL PHYSICAL HEALTH DETERIORATION [None]
  - HAEMATURIA [None]
  - LYMPHOCYTE STIMULATION TEST POSITIVE [None]
  - PAIN [None]
  - PROTEINURIA [None]
  - RENAL DISORDER [None]
